FAERS Safety Report 18911397 (Version 3)
Quarter: 2021Q2

REPORT INFORMATION
  Report Type: Spontaneous
  Country: US (occurrence: US)
  Receive Date: 20210218
  Receipt Date: 20210402
  Transmission Date: 20210717
  Serious: No
  Sender: FDA-Public Use
  Company Number: US-BIOGEN-2021BI00975237

PATIENT
  Sex: Female

DRUGS (4)
  1. TECFIDERA [Suspect]
     Active Substance: DIMETHYL FUMARATE
     Indication: MULTIPLE SCLEROSIS
     Route: 065
     Dates: start: 20151123, end: 20180801
  2. VUMERITY [Suspect]
     Active Substance: DIROXIMEL FUMARATE
     Route: 065
     Dates: start: 202101
  3. TECFIDERA [Suspect]
     Active Substance: DIMETHYL FUMARATE
     Route: 065
     Dates: start: 20190926
  4. VUMERITY [Suspect]
     Active Substance: DIROXIMEL FUMARATE
     Indication: MULTIPLE SCLEROSIS
     Dosage: STARTING DOSE
     Route: 065
     Dates: start: 20210128

REACTIONS (8)
  - Fear of eating [Unknown]
  - Drug intolerance [Unknown]
  - Tinnitus [Not Recovered/Not Resolved]
  - Flushing [Unknown]
  - Dyspepsia [Not Recovered/Not Resolved]
  - Prescribed underdose [Unknown]
  - Visual acuity reduced [Not Recovered/Not Resolved]
  - Abdominal pain upper [Not Recovered/Not Resolved]
